FAERS Safety Report 14038713 (Version 1)
Quarter: 2017Q4

REPORT INFORMATION
  Report Type: Spontaneous
  Country: US (occurrence: US)
  Receive Date: 20171004
  Receipt Date: 20171004
  Transmission Date: 20180321
  Serious: No
  Sender: FDA-Public Use
  Company Number: US-INDIVIOR LIMITED-INDV-096993-2016

PATIENT
  Sex: Female
  Weight: 58.96 kg

DRUGS (2)
  1. SUBOXONE [Suspect]
     Active Substance: BUPRENORPHINE HYDROCHLORIDE\NALOXONE HYDROCHLORIDE
     Indication: DEPRESSION
     Dosage: 8 MG, UNK
     Route: 060
     Dates: start: 2015
  2. SUBOXONE [Suspect]
     Active Substance: BUPRENORPHINE HYDROCHLORIDE\NALOXONE HYDROCHLORIDE
     Indication: ANXIETY
     Dosage: CUT THE STRIP TO 4 PIECES AND USES A 1/4TH OF A STRIP, DAILY
     Route: 060
     Dates: start: 2015

REACTIONS (7)
  - Substance abuse [Unknown]
  - Maternal exposure during pregnancy [Unknown]
  - Drug dependence [Unknown]
  - Drug withdrawal syndrome [Unknown]
  - Therapeutic response unexpected [Unknown]
  - Product preparation error [Unknown]
  - Intentional underdose [Unknown]

NARRATIVE: CASE EVENT DATE: 20161005
